FAERS Safety Report 17439996 (Version 10)
Quarter: 2021Q2

REPORT INFORMATION
  Report Type: Spontaneous
  Country: US (occurrence: US)
  Receive Date: 20200220
  Receipt Date: 20210518
  Transmission Date: 20210716
  Serious: Yes (Other)
  Sender: FDA-Public Use
  Company Number: US-PFIZER INC-2020005167

PATIENT
  Age: 67 Year
  Sex: Female

DRUGS (7)
  1. RETACRIT [Suspect]
     Active Substance: EPOETIN ALFA-EPBX
     Dosage: 1 ML, CYCLIC (INJECT 1ML SQ ONCE WEEKLY FOR 3 WEEKS, OFF 1 WEEK)
     Route: 058
  2. RETACRIT [Suspect]
     Active Substance: EPOETIN ALFA-EPBX
     Dosage: INJECT 1ML SQ(SUBCUTANEOUS) EVERY OTHER WEEK
     Route: 058
  3. RETACRIT [Suspect]
     Active Substance: EPOETIN ALFA-EPBX
     Dosage: 40000 IU, EVERY OTHER WEEK
  4. RETACRIT [Suspect]
     Active Substance: EPOETIN ALFA-EPBX
     Indication: NEPHROGENIC ANAEMIA
     Dosage: 40000 IU, UNK
  5. RETACRIT [Suspect]
     Active Substance: EPOETIN ALFA-EPBX
     Indication: CHRONIC KIDNEY DISEASE
     Dosage: 1 ML (INJECT 1ML SQ EVERY OTHER WEEK)
     Route: 058
  6. RETACRIT [Suspect]
     Active Substance: EPOETIN ALFA-EPBX
     Dosage: 40000 IU, WEEKLY (40,000 UNITS TAKEN EVERY WEEK)
  7. RETACRIT [Suspect]
     Active Substance: EPOETIN ALFA-EPBX
     Dosage: 40000 IU, EVERY OTHER WEEK (40,000 UNIT/ML, INJECT 1 ML EVERY OTHER WEEK)
     Route: 058

REACTIONS (3)
  - Off label use [Unknown]
  - Cerebrovascular accident [Unknown]
  - Speech disorder [Unknown]
